FAERS Safety Report 19068968 (Version 1)
Quarter: 2021Q1

REPORT INFORMATION
  Report Type: Report from Study
  Country: US (occurrence: US)
  Receive Date: 20210329
  Receipt Date: 20210329
  Transmission Date: 20210420
  Serious: Yes (Hospitalization)
  Sender: FDA-Public Use
  Company Number: US-BAYER-2021-109897

PATIENT
  Age: 42 Year
  Sex: Male

DRUGS (8)
  1. HYDROMORPHONE [Concomitant]
     Active Substance: HYDROMORPHONE
     Dosage: UNK
  2. PROCHLORPERAZINE. [Concomitant]
     Active Substance: PROCHLORPERAZINE
     Dosage: UNK
  3. LONSURF [Concomitant]
     Active Substance: TIPIRACIL HYDROCHLORIDE\TRIFLURIDINE
     Dosage: UNK
  4. ACETAMINOPHEN;HYDROCODONE [Concomitant]
     Active Substance: ACETAMINOPHEN\HYDROCODONE
     Dosage: UNK
  5. STIVARGA [Suspect]
     Active Substance: REGORAFENIB
     Indication: COLON CANCER
     Dosage: 80 MG DAILY FOR 21 OF 28 DAYS
     Route: 048
     Dates: start: 20200418
  6. FUROSEMIDE. [Concomitant]
     Active Substance: FUROSEMIDE
     Dosage: UNK
  7. DOXYCYCLINE. [Concomitant]
     Active Substance: DOXYCYCLINE
     Dosage: UNK
  8. ONDANSETRON [Concomitant]
     Active Substance: ONDANSETRON
     Dosage: UNK

REACTIONS (2)
  - Off label use [None]
  - Hospitalisation [Unknown]

NARRATIVE: CASE EVENT DATE: 20200418
